FAERS Safety Report 8976271 (Version 1)
Quarter: 2012Q4

REPORT INFORMATION
  Report Type: 
  Country: FR (occurrence: FR)
  Receive Date: 20121220
  Receipt Date: 20121220
  Transmission Date: 20130627
  Serious: Yes (Other)
  Sender: FDA-Public Use
  Company Number: FR-ABBOTT-12P-056-1020205-00

PATIENT
  Age: 60 Year
  Sex: Female
  Weight: 55 kg

DRUGS (4)
  1. HUMIRA [Suspect]
     Indication: CROHN^S DISEASE
     Route: 058
     Dates: start: 201203, end: 201211
  2. IMUREL [Concomitant]
     Indication: CROHN^S DISEASE
     Route: 048
     Dates: start: 201203, end: 201210
  3. CORTANCYL [Concomitant]
     Indication: CROHN^S DISEASE
     Dosage: 20 to 50 mg/day
     Route: 048
     Dates: start: 201202, end: 201204
  4. CACIT D3 [Concomitant]
     Indication: PRODUCT USED FOR UNKNOWN INDICATION
     Route: 048
     Dates: start: 201202, end: 201204

REACTIONS (4)
  - Tinnitus [Not Recovered/Not Resolved]
  - Pruritus [Not Recovered/Not Resolved]
  - Insomnia [Not Recovered/Not Resolved]
  - Fatigue [Not Recovered/Not Resolved]
